FAERS Safety Report 20952302 (Version 1)
Quarter: 2022Q2

REPORT INFORMATION
  Report Type: Report from Study
  Country: US (occurrence: US)
  Receive Date: 20220613
  Receipt Date: 20220613
  Transmission Date: 20220721
  Serious: Yes (Death)
  Sender: FDA-Public Use
  Company Number: US-ALNYLAM PHARMACEUTICALS, INC.-ALN-2021-001747

PATIENT

DRUGS (2)
  1. ONPATTRO [Suspect]
     Active Substance: PATISIRAN SODIUM
     Indication: Hereditary neuropathic amyloidosis
     Dosage: UNK
     Route: 042
     Dates: start: 201905, end: 20210621
  2. COVID vaccine [Concomitant]
     Indication: COVID-19 immunisation
     Dosage: UNK
     Route: 065

REACTIONS (3)
  - COVID-19 [Fatal]
  - Immunodeficiency [Unknown]
  - Unevaluable event [Unknown]
